FAERS Safety Report 4329920-3 (Version None)
Quarter: 2004Q1

REPORT INFORMATION
  Report Type: 
  Country: None (occurrence: None)
  Receive Date: 20040329
  Receipt Date: 20040315
  Transmission Date: 20041129
  Serious: Yes (Hospitalization)
  Sender: FDA-Public Use
  Company Number: FR-JNJFOC-20040303048

PATIENT
  Age: 31 Year
  Sex: Male

DRUGS (6)
  1. HALDOL [Suspect]
     Dosage: 5 MG, IN 1 DAY, SUBCUTANEOUS
     Route: 058
     Dates: start: 20030213
  2. KETOPROFEN [Concomitant]
  3. PERFALGAN (ALL OTHER THERAPEUTIC PRODUCTS) [Concomitant]
  4. ONDANSETRON HCL [Concomitant]
  5. CELEBREX 200 (CELECOXIB) [Concomitant]
  6. FRAGMIN [Concomitant]

REACTIONS (3)
  - DYSTONIA [None]
  - GAZE PALSY [None]
  - TRISMUS [None]
